FAERS Safety Report 13747474 (Version 1)
Quarter: 2017Q3

REPORT INFORMATION
  Report Type: Spontaneous
  Country: US (occurrence: US)
  Receive Date: 20170712
  Receipt Date: 20170712
  Transmission Date: 20171127
  Serious: Yes (Hospitalization)
  Sender: FDA-Public Use
  Company Number: US-ALLERGAN-1728770US

PATIENT
  Age: 76 Year
  Sex: Male
  Weight: 86.17 kg

DRUGS (4)
  1. DILAUDID [Suspect]
     Active Substance: HYDROMORPHONE HYDROCHLORIDE
     Indication: PROCEDURAL PAIN
     Dosage: 0.5 MG, PRN
     Route: 042
     Dates: start: 20170602, end: 20170603
  2. DILAUDID [Suspect]
     Active Substance: HYDROMORPHONE HYDROCHLORIDE
     Dosage: 0.2 MG, UNK
     Route: 042
     Dates: start: 20170530, end: 20170602
  3. NORCO [Suspect]
     Active Substance: ACETAMINOPHEN\HYDROCODONE BITARTRATE
     Indication: PROCEDURAL PAIN
     Dosage: 20/650 MG
     Route: 065
     Dates: start: 20170601, end: 20170604
  4. NORCO [Suspect]
     Active Substance: ACETAMINOPHEN\HYDROCODONE BITARTRATE
     Dosage: 10/325 MG
     Route: 065
     Dates: start: 20170531, end: 20170531

REACTIONS (1)
  - Postoperative ileus [Unknown]

NARRATIVE: CASE EVENT DATE: 20170603
